FAERS Safety Report 15972566 (Version 2)
Quarter: 2019Q1

REPORT INFORMATION
  Report Type: Spontaneous
  Country: FR (occurrence: FR)
  Receive Date: 20190216
  Receipt Date: 20190219
  Transmission Date: 20190418
  Serious: Yes (Hospitalization)
  Sender: FDA-Public Use
  Company Number: FR-ACCORD-107149

PATIENT
  Age: 53 Year
  Sex: Male
  Weight: 69 kg

DRUGS (4)
  1. CISPLATINE MYLAN [Suspect]
     Active Substance: CISPLATIN
     Indication: THROAT CANCER
     Route: 041
     Dates: start: 20180514, end: 20180514
  2. DALACINE [Suspect]
     Active Substance: CLINDAMYCIN
     Indication: ALLERGY TEST
     Dosage: UNSPECIFIED
     Route: 048
     Dates: start: 20180514, end: 20180514
  3. DOCETAXEL ACCORD [Suspect]
     Active Substance: DOCETAXEL
     Indication: THROAT CANCER
     Route: 041
     Dates: start: 20180514, end: 20180514
  4. FLUOROURACIL ACCORD [Suspect]
     Active Substance: FLUOROURACIL
     Indication: THROAT CANCER
     Dosage: 5340 MG OVER 5 DAYS
     Route: 041
     Dates: start: 20180514, end: 20180518

REACTIONS (3)
  - Pruritus [Recovered/Resolved]
  - Face oedema [Recovered/Resolved]
  - Rash [Recovered/Resolved]

NARRATIVE: CASE EVENT DATE: 20180523
